FAERS Safety Report 24267654 (Version 1)
Quarter: 2024Q3

REPORT INFORMATION
  Report Type: Spontaneous
  Country: US (occurrence: None)
  Receive Date: 20240829
  Receipt Date: 20240829
  Transmission Date: 20241017
  Serious: No
  Sender: Public
  Company Number: None

PATIENT
  Age: 37 Year
  Sex: Female
  Weight: 89.4 kg

DRUGS (1)
  1. BUPIVACAINE [Suspect]
     Active Substance: BUPIVACAINE
     Indication: Labour pain
     Dosage: OTHER FREQUENCY : ONCE;?
     Route: 008

REACTIONS (3)
  - Hypoaesthesia [None]
  - Dizziness [None]
  - Product preparation error [None]

NARRATIVE: CASE EVENT DATE: 20240828
